FAERS Safety Report 25986370 (Version 1)
Quarter: 2025Q4

REPORT INFORMATION
  Report Type: Spontaneous
  Country: SY (occurrence: SY)
  Receive Date: 20251031
  Receipt Date: 20251031
  Transmission Date: 20260118
  Serious: Yes (Life-Threatening, Hospitalization, Other)
  Sender: VISTAPHARM
  Company Number: SY-VISTAPHARM-2025-SY-000003

PATIENT
  Age: 22 Year
  Sex: Female

DRUGS (1)
  1. METFORMIN HYDROCHLORIDE [Suspect]
     Active Substance: METFORMIN HYDROCHLORIDE
     Indication: Weight control
     Dosage: UP TO 3000 MG DAILY

REACTIONS (3)
  - Multiple organ dysfunction syndrome [Recovered/Resolved]
  - Lactic acidosis [Recovered/Resolved]
  - Drug abuse [Recovered/Resolved]
